FAERS Safety Report 13858433 (Version 1)
Quarter: 2017Q3

REPORT INFORMATION
  Report Type: Spontaneous
  Country: US (occurrence: US)
  Receive Date: 20170810
  Receipt Date: 20170810
  Transmission Date: 20171127
  Serious: Yes (Death)
  Sender: FDA-Public Use
  Company Number: None

PATIENT
  Age: 47 Year
  Sex: Female
  Weight: 58.5 kg

DRUGS (5)
  1. TEMAZEPAM. [Suspect]
     Active Substance: TEMAZEPAM
  2. DAIZEPAM [Suspect]
     Active Substance: DIAZEPAM
  3. ALPRAZOLAM. [Suspect]
     Active Substance: ALPRAZOLAM
     Indication: DEPRESSION
     Route: 048
  4. ALPRAZOLAM. [Suspect]
     Active Substance: ALPRAZOLAM
     Indication: ANXIETY
     Route: 048
  5. CLONAZOPAM [Suspect]
     Active Substance: CLONAZEPAM

REACTIONS (5)
  - Drowning [None]
  - Impaired work ability [None]
  - Marital problem [None]
  - Completed suicide [None]
  - Toxicity to various agents [None]

NARRATIVE: CASE EVENT DATE: 20170202
